FAERS Safety Report 10055267 (Version 1)
Quarter: 2014Q2

REPORT INFORMATION
  Report Type: Report from Study
  Country: US (occurrence: US)
  Receive Date: 20140403
  Receipt Date: 20140403
  Transmission Date: 20141212
  Serious: Yes (Hospitalization)
  Sender: FDA-Public Use
  Company Number: US-ROCHE-1371085

PATIENT
  Sex: 0

DRUGS (20)
  1. MYCOPHENOLATE MOFETIL [Suspect]
     Indication: IMMUNOSUPPRESSION
     Route: 065
  2. MYCOPHENOLATE MOFETIL [Suspect]
     Dosage: DOSE OF 2-3 G/D IN TWO DIVIDED DOSES
     Route: 065
  3. DACLIZUMAB [Suspect]
     Indication: IMMUNOSUPPRESSION
     Dosage: 1 MG/KG ON DAY 0 AND 1 DOSE EVERY OTHER WEEK FOR TOTAL OF FIVE DOSES
     Route: 065
  4. ALEMTUZUMAB [Suspect]
     Indication: IMMUNOSUPPRESSION
     Dosage: ONE OR TWO 20 MG DOSES
     Route: 065
  5. BASILIXIMAB [Suspect]
     Indication: IMMUNOSUPPRESSION
     Dosage: TWO DOSES OF 20 MG ON DAY 0 OR THE DAY OF SURGERY AND DAY 4,
     Route: 065
  6. THYMOGLOBULIN [Suspect]
     Indication: IMMUNOSUPPRESSION
     Route: 065
  7. MUROMONAB-CD3 [Suspect]
     Indication: IMMUNOSUPPRESSION
     Route: 065
  8. ATG [Suspect]
     Indication: IMMUNOSUPPRESSION
     Route: 065
  9. TACROLIMUS [Suspect]
     Indication: IMMUNOSUPPRESSION
     Route: 065
  10. CYCLOSPORINE [Suspect]
     Indication: IMMUNOSUPPRESSION
     Route: 065
  11. METHYLPREDNISOLONE [Suspect]
     Indication: IMMUNOSUPPRESSION
     Dosage: 500 MG INTRAVENOUSLY ON DAY 0 AND 250 MG INTRAVENOUSLY ON DAY 1
     Route: 042
  12. PREDNISONE [Suspect]
     Indication: IMMUNOSUPPRESSION
     Dosage: 90 MG ORALLY ON DAY 2, 60 MG ON DAY 3, 30 MG ON DAY 4, AND 30 MG DAILY THEREAFTER. PREDNISONE WAS TA
     Route: 048
  13. CEFAZOLIN [Concomitant]
  14. CEFTRIAXONE [Concomitant]
     Route: 065
  15. CLOTRIMAZOLE [Concomitant]
  16. NYSTATIN [Concomitant]
  17. VALGANCICLOVIR [Concomitant]
     Route: 065
  18. ACYCLOVIR [Concomitant]
     Route: 065
  19. ACYCLOVIR [Concomitant]
     Route: 065
  20. GANCICLOVIR [Concomitant]
     Route: 048

REACTIONS (1)
  - Clostridium difficile infection [Unknown]
